FAERS Safety Report 7955772-6 (Version None)
Quarter: 2011Q4

REPORT INFORMATION
  Report Type: 
  Country: None (occurrence: None)
  Receive Date: 20111204
  Receipt Date: 20111126
  Transmission Date: 20120403
  Serious: Yes (Other)
  Sender: FDA-Public Use
  Company Number: US-CEPHALON-US011098

PATIENT
  Age: 37 Year
  Sex: Male

DRUGS (4)
  1. KLONOPIN [Concomitant]
     Dosage: DAILY: 3 TABS; UNIT: 1 TABS;
     Route: 048
  2. PROVIGIL [Suspect]
     Indication: FATIGUE
     Route: 048
     Dates: start: 20030314, end: 20030314
  3. PROZAC [Concomitant]
     Indication: DEPRESSION
     Route: 048
  4. NEURONTIN [Concomitant]
     Route: 048

REACTIONS (1)
  - LOSS OF CONSCIOUSNESS [None]
